FAERS Safety Report 5120877-4 (Version None)
Quarter: 2006Q4

REPORT INFORMATION
  Report Type: 
  Country: None (occurrence: None)
  Receive Date: 20061005
  Receipt Date: 20060511
  Transmission Date: 20070319
  Serious: Yes (Other)
  Sender: FDA-Public Use
  Company Number: ES-AMGEN-UK179244

PATIENT
  Age: 55 Year

DRUGS (3)
  1. ARANESP [Suspect]
     Indication: ANAEMIA OF MALIGNANT DISEASE
     Route: 065
  2. CYCLOPHOSPHAMIDE [Concomitant]
  3. FLUDARABINE [Concomitant]

REACTIONS (1)
  - APLASIA PURE RED CELL [None]
